FAERS Safety Report 8744163 (Version 2)
Quarter: 2013Q1

REPORT INFORMATION
  Report Type: Spontaneous
  Country: US (occurrence: US)
  Receive Date: 20120824
  Receipt Date: 20130131
  Transmission Date: 20140127
  Serious: Yes (Other)
  Sender: FDA-Public Use
  Company Number: US-ASTRAZENECA-2012SE60340

PATIENT
  Age: 45 Year
  Sex: Male

DRUGS (1)
  1. CRESTOR [Suspect]
     Route: 048

REACTIONS (6)
  - Fall [Unknown]
  - Joint injury [Unknown]
  - Meniscus injury [Unknown]
  - Ligament injury [Unknown]
  - Ligament sprain [Unknown]
  - Joint effusion [Unknown]
